FAERS Safety Report 24806877 (Version 1)
Quarter: 2025Q1

REPORT INFORMATION
  Report Type: Spontaneous
  Country: FR (occurrence: FR)
  Receive Date: 20250104
  Receipt Date: 20250104
  Transmission Date: 20250409
  Serious: Yes (Hospitalization)
  Sender: ACCORD
  Company Number: None

PATIENT
  Age: 50 Year
  Sex: Female
  Weight: 68 kg

DRUGS (3)
  1. FLUOROURACIL [Suspect]
     Active Substance: FLUOROURACIL
     Indication: Adenocarcinoma of colon
     Dosage: STRENGTH: 50 MG/ML, 4250 MG IVC 725 MG IVL
     Dates: start: 20241105
  2. IRINOTECAN [Suspect]
     Active Substance: IRINOTECAN
     Indication: Adenocarcinoma of colon
     Dosage: STRENGTH: 20 MG/ML
     Dates: start: 20241105
  3. VECTIBIX [Suspect]
     Active Substance: PANITUMUMAB
     Indication: Adenocarcinoma of colon
     Dosage: STRENGTH: 20 MG/ML
     Dates: start: 20241105

REACTIONS (1)
  - Colitis [Recovered/Resolved]

NARRATIVE: CASE EVENT DATE: 20241111
